FAERS Safety Report 9768435 (Version 4)
Quarter: 2014Q2

REPORT INFORMATION
  Report Type: Report from Study
  Country: DE (occurrence: DE)
  Receive Date: 20131217
  Receipt Date: 20140623
  Transmission Date: 20141212
  Serious: Yes (Hospitalization, Other)
  Sender: FDA-Public Use
  Company Number: PHHY2013DE126872

PATIENT
  Sex: Male

DRUGS (8)
  1. AFINITOR [Suspect]
     Indication: METASTATIC RENAL CELL CARCINOMA
     Dosage: 10 MG, QD
     Route: 048
     Dates: start: 20130610, end: 20130929
  2. AFINITOR [Suspect]
     Dosage: 5 MG, QD
     Route: 048
     Dates: start: 20131104, end: 20131118
  3. AMLODIPINE [Concomitant]
     Indication: HYPERTENSION
     Dosage: 5 MG
  4. MARCUMAR [Concomitant]
     Indication: MYOCARDIAL INFARCTION
  5. OMEPRAZOLE [Concomitant]
     Indication: PROPHYLAXIS
     Dosage: 40 MG, UNK
     Dates: start: 20130930
  6. GALVUS [Concomitant]
     Indication: DIABETES MELLITUS
     Dosage: 50 MG
  7. ACTRAPID//INSULIN HUMAN [Concomitant]
     Indication: DIABETES MELLITUS
  8. ZOPICLON [Concomitant]
     Indication: SLEEP DISORDER
     Dosage: 7.5 MG, UNK
     Dates: start: 20130930, end: 20131015

REACTIONS (6)
  - Pancreatitis [Not Recovered/Not Resolved]
  - Malignant neoplasm progression [Not Recovered/Not Resolved]
  - Organising pneumonia [Recovered/Resolved]
  - Pneumonia [Recovered/Resolved]
  - Bone pain [Not Recovered/Not Resolved]
  - Blood iron decreased [Not Recovered/Not Resolved]
